FAERS Safety Report 20029563 (Version 3)
Quarter: 2022Q3

REPORT INFORMATION
  Report Type: Spontaneous
  Country: US (occurrence: US)
  Receive Date: 20211103
  Receipt Date: 20220804
  Transmission Date: 20221026
  Serious: Yes (Other)
  Sender: FDA-Public Use
  Company Number: US-PFIZER INC-202101401973

PATIENT
  Sex: Female

DRUGS (6)
  1. COVID-19 VACCINE NOS [Suspect]
     Active Substance: COVID-19 VACCINE NOS
     Indication: COVID-19 immunisation
     Dosage: DOSE NUMBER UNKOWN, SINGLE
  2. GABAPENTIN [Suspect]
     Active Substance: GABAPENTIN
     Dosage: UNK
  3. ZYPREXA [Suspect]
     Active Substance: OLANZAPINE
  4. NEURONTIN [Concomitant]
     Active Substance: GABAPENTIN
  5. FLEXERIL [Concomitant]
     Active Substance: CYCLOBENZAPRINE HYDROCHLORIDE
     Indication: Muscle disorder
  6. ABILIFY [Concomitant]
     Active Substance: ARIPIPRAZOLE

REACTIONS (6)
  - Seizure [Unknown]
  - Hypoaesthesia [Unknown]
  - Arthritis [Unknown]
  - Anxiety [Unknown]
  - Maternal exposure timing unspecified [Unknown]
  - Circumstance or information capable of leading to medication error [Unknown]
